FAERS Safety Report 10174767 (Version 1)
Quarter: 2014Q2

REPORT INFORMATION
  Report Type: Spontaneous
  Country: FR (occurrence: FR)
  Receive Date: 20140515
  Receipt Date: 20140515
  Transmission Date: 20141212
  Serious: Yes (Hospitalization, Other)
  Sender: FDA-Public Use
  Company Number: FR-PFIZER INC-2014130224

PATIENT
  Age: 62 Year
  Sex: Male

DRUGS (10)
  1. RAPAMUNE [Suspect]
     Indication: RENAL TRANSPLANT
     Dosage: 1 MG, ALTERNATE DAY
     Route: 048
     Dates: start: 20110726
  2. CELLCEPT [Suspect]
     Indication: RENAL TRANSPLANT
     Dosage: 1000 MG, DAILY
     Route: 048
     Dates: start: 20001214
  3. SOLUPRED [Suspect]
     Indication: RENAL TRANSPLANT
     Dosage: 5 MG, DAILY
     Route: 048
     Dates: start: 20010308
  4. IMUREL [Suspect]
     Indication: RENAL TRANSPLANT
     Dosage: 2 DF, DAILY
     Route: 048
     Dates: start: 20040929
  5. PROGRAF [Suspect]
     Indication: RENAL TRANSPLANT
     Dosage: 3 MG, 2X/DAY
     Route: 048
     Dates: start: 20010523
  6. TENORMINE [Concomitant]
     Dosage: UNK
  7. INSULIN [Concomitant]
     Dosage: UNK
  8. KARDEGIC [Concomitant]
     Dosage: UNK
  9. ZEFFIX [Concomitant]
     Dosage: UNK
  10. DELURSAN [Concomitant]
     Dosage: UNK

REACTIONS (1)
  - Transitional cell carcinoma [Not Recovered/Not Resolved]
